FAERS Safety Report 14706411 (Version 2)
Quarter: 2018Q2

REPORT INFORMATION
  Report Type: Report from Study
  Country: US (occurrence: US)
  Receive Date: 20180402
  Receipt Date: 20180618
  Transmission Date: 20180711
  Serious: No
  Sender: FDA-Public Use
  Company Number: PHEH2018US012409

PATIENT
  Age: 52 Year
  Sex: Female

DRUGS (1)
  1. GILENYA [Suspect]
     Active Substance: FINGOLIMOD HYDROCHLORIDE
     Indication: MULTIPLE SCLEROSIS
     Dosage: 0.5 MG, QD
     Route: 048
     Dates: start: 20180122

REACTIONS (10)
  - Blood glucose decreased [Unknown]
  - Nasopharyngitis [Not Recovered/Not Resolved]
  - Blood sodium increased [Unknown]
  - Depression [Unknown]
  - Oral herpes [Unknown]
  - Nausea [Unknown]
  - Fatigue [Unknown]
  - Ocular discomfort [Unknown]
  - White blood cell count decreased [Unknown]
  - Sinus headache [Unknown]

NARRATIVE: CASE EVENT DATE: 20180122
